FAERS Safety Report 10149484 (Version 2)
Quarter: 2014Q3

REPORT INFORMATION
  Report Type: Spontaneous
  Country: US (occurrence: US)
  Receive Date: 20140502
  Receipt Date: 20140821
  Transmission Date: 20150326
  Serious: Yes (Hospitalization)
  Sender: FDA-Public Use
  Company Number: US-SA-2014SA055618

PATIENT
  Age: 52 Year
  Sex: Male

DRUGS (1)
  1. FABRAZYME [Suspect]
     Active Substance: AGALSIDASE BETA
     Indication: FABRY^S DISEASE
     Route: 042
     Dates: start: 201309

REACTIONS (1)
  - Influenza [Unknown]

NARRATIVE: CASE EVENT DATE: 201404
